FAERS Safety Report 4825227-6 (Version None)
Quarter: 2005Q4

REPORT INFORMATION
  Report Type: 
  Country: None (occurrence: None)
  Receive Date: 20051109
  Receipt Date: 20051031
  Transmission Date: 20060501
  Serious: Yes (Hospitalization)
  Sender: FDA-Public Use
  Company Number: HQWYE392903NOV05

PATIENT
  Age: 50 Year
  Sex: Male

DRUGS (6)
  1. RAPAMUNE [Suspect]
     Indication: PROPHYLAXIS AGAINST TRANSPLANT REJECTION
     Dosage: 3 MG 1X PER 1 DAY ORAL
     Route: 048
     Dates: start: 20050928
  2. CYCLOSPORINE [Concomitant]
  3. SULFAMETHOXAZOLE + TRIMETHOPRIM [Concomitant]
  4. RANITIDINE [Concomitant]
  5. PREDNISONE [Concomitant]
  6. SIMVASTATIN [Concomitant]

REACTIONS (5)
  - COMPLICATIONS OF TRANSPLANTED KIDNEY [None]
  - GRAFT DYSFUNCTION [None]
  - KIDNEY TRANSPLANT REJECTION [None]
  - RENAL TUBULAR NECROSIS [None]
  - TUBULOINTERSTITIAL NEPHRITIS [None]
